FAERS Safety Report 24559688 (Version 1)
Quarter: 2024Q4

REPORT INFORMATION
  Report Type: Spontaneous
  Country: US (occurrence: US)
  Receive Date: 20241029
  Receipt Date: 20241029
  Transmission Date: 20250114
  Serious: No
  Sender: ALMIRALL, LLC
  Company Number: US-ALMIRALL, LLC-2024AQU000023

PATIENT

DRUGS (1)
  1. SEYSARA [Suspect]
     Active Substance: SARECYCLINE HYDROCHLORIDE
     Indication: Acne
     Route: 065

REACTIONS (1)
  - Gynaecomastia [Recovered/Resolved]
